FAERS Safety Report 5325797-8 (Version None)
Quarter: 2007Q2

REPORT INFORMATION
  Report Type: 
  Country: None (occurrence: None)
  Receive Date: 20070510
  Receipt Date: 20070424
  Transmission Date: 20071010
  Serious: Yes (Life-Threatening, Hospitalization)
  Sender: FDA-Public Use
  Company Number: DSA_29749_2007

PATIENT
  Sex: Female

DRUGS (6)
  1. TAVOR / 00273201/ (TAVOR) [Suspect]
     Dosage: 2 MG 1X ORAL
     Route: 048
     Dates: start: 20070410, end: 20070410
  2. CIPRALEX / 01588501/ (CIPRALEX) [Suspect]
     Dosage: 10 MG 1X ORAL
     Route: 048
     Dates: start: 20070410, end: 20070410
  3. CLONIDINE [Suspect]
     Dosage: 225 MG 1X ORAL
     Route: 048
     Dates: start: 20070410, end: 20070410
  4. PANTOZOL (PANTOZOL) (NOT SPECIFIED) [Suspect]
     Dosage: 40 MG 1X ORAL
     Route: 048
     Dates: start: 20070410, end: 20070410
  5. RISPERIDONE [Suspect]
     Dosage: ORAL
     Route: 048
     Dates: start: 20070410, end: 20070410
  6. ALCOHOL /00002101/ (ALCOHOL) [Suspect]
     Dosage: ORAL
     Route: 048
     Dates: start: 20070410, end: 20070410

REACTIONS (6)
  - FEELING DRUNK [None]
  - MULTIPLE DRUG OVERDOSE INTENTIONAL [None]
  - NAUSEA [None]
  - SOMNOLENCE [None]
  - SUICIDE ATTEMPT [None]
  - VOMITING [None]
